FAERS Safety Report 14156999 (Version 1)
Quarter: 2017Q4

REPORT INFORMATION
  Report Type: Spontaneous
  Country: US (occurrence: None)
  Receive Date: 20171103
  Receipt Date: 20171103
  Transmission Date: 20180321
  Serious: No
  Sender: FDA-Public Use
  Company Number: None

PATIENT
  Age: 66 Year
  Sex: Female

DRUGS (7)
  1. ESCITALOPRAM [Suspect]
     Active Substance: ESCITALOPRAM OXALATE
  2. BACLOFEN. [Suspect]
     Active Substance: BACLOFEN
  3. APOKYN [Suspect]
     Active Substance: APOMORPHINE HYDROCHLORIDE
     Indication: PARKINSON^S DISEASE
     Dosage: 0.2-0.4ML UP TO 5 TIMES SQ
     Route: 058
     Dates: start: 20170920, end: 20171020
  4. CLONAZEPAM. [Suspect]
     Active Substance: CLONAZEPAM
  5. TRIMETHOBENZAMIDE [Suspect]
     Active Substance: TRIMETHOBENZAMIDE
  6. CARBIDOPA/LEVODOPA [Suspect]
     Active Substance: CARBIDOPA\LEVODOPA
  7. ROPINIROLE. [Suspect]
     Active Substance: ROPINIROLE

REACTIONS (1)
  - Drug effect decreased [None]

NARRATIVE: CASE EVENT DATE: 20170920
